FAERS Safety Report 16840424 (Version 1)
Quarter: 2019Q3

REPORT INFORMATION
  Report Type: Spontaneous
  Country: US (occurrence: US)
  Receive Date: 20190923
  Receipt Date: 20190923
  Transmission Date: 20191005
  Serious: Yes (Other)
  Sender: FDA-Public Use
  Company Number: US-MYLANLABS-2019M1088427

PATIENT
  Age: 73 Year
  Sex: Female

DRUGS (2)
  1. ERLOTINIB [Suspect]
     Active Substance: ERLOTINIB
     Indication: LUNG ADENOCARCINOMA STAGE II
     Dosage: DISCONTINUED WHEN NO RECURRENCE WAS NOTED
     Route: 065
  2. ERLOTINIB [Suspect]
     Active Substance: ERLOTINIB
     Indication: ADJUVANT THERAPY
     Dosage: DISCONTINUED WITH EGFRT 790M MUTATION..
     Route: 065

REACTIONS (1)
  - Drug resistance [Unknown]
